FAERS Safety Report 21937003 (Version 1)
Quarter: 2023Q1

REPORT INFORMATION
  Report Type: Spontaneous
  Country: US (occurrence: None)
  Receive Date: 20230131
  Receipt Date: 20230131
  Transmission Date: 20230418
  Serious: Yes (Hospitalization, Other)
  Sender: FDA-Public Use
  Company Number: None

PATIENT
  Age: 34 Year
  Sex: Female

DRUGS (13)
  1. DILTIAZEM [Suspect]
     Active Substance: DILTIAZEM
     Indication: Supraventricular extrasystoles
     Dosage: FREQUENCY : DAILY;?
     Route: 048
     Dates: start: 20221230, end: 20230117
  2. COREG [Concomitant]
     Active Substance: CARVEDILOL
  3. QULIPTA [Concomitant]
     Active Substance: ATOGEPANT
  4. UBRELVY [Concomitant]
     Active Substance: UBROGEPANT
  5. ALBUTEROL [Concomitant]
     Active Substance: ALBUTEROL
  6. PREDNISONE [Concomitant]
     Active Substance: PREDNISONE
  7. HYDROXYZINE [Concomitant]
     Active Substance: HYDROXYZINE HYDROCHLORIDE
  8. BENADRYL [Concomitant]
     Active Substance: DIPHENHYDRAMINE HYDROCHLORIDE
  9. VICODIN [Concomitant]
     Active Substance: ACETAMINOPHEN\HYDROCODONE BITARTRATE
  10. UNSPECIFIED INGREDIENT [Concomitant]
     Active Substance: UNSPECIFIED INGREDIENT
  11. CLARITIN [Concomitant]
     Active Substance: LORATADINE
  12. PRILOSEC [Concomitant]
     Active Substance: OMEPRAZOLE MAGNESIUM
  13. VITAMINS [Concomitant]
     Active Substance: VITAMINS

REACTIONS (2)
  - Rash vesicular [None]
  - Therapy cessation [None]

NARRATIVE: CASE EVENT DATE: 20230114
